FAERS Safety Report 23102480 (Version 1)
Quarter: 2023Q4

REPORT INFORMATION
  Report Type: Report from Study
  Country: US (occurrence: US)
  Receive Date: 20231025
  Receipt Date: 20231025
  Transmission Date: 20240110
  Serious: Yes (Other)
  Sender: FDA-Public Use
  Company Number: US-SANDOZ-SDZ2023US045021

PATIENT
  Sex: Female

DRUGS (2)
  1. LISINOPRIL [Suspect]
     Active Substance: LISINOPRIL
     Indication: Product used for unknown indication
     Dosage: UNK
     Route: 065
  2. ENTRESTO [Suspect]
     Active Substance: SACUBITRIL\VALSARTAN
     Indication: Product used for unknown indication
     Dosage: QD (24/26 MGS, BID)
     Route: 048

REACTIONS (6)
  - Blood pressure increased [Recovering/Resolving]
  - Peripheral swelling [Unknown]
  - Abdominal distension [Unknown]
  - Fluid retention [Unknown]
  - Product dose omission issue [Unknown]
  - Drug ineffective [Unknown]
